FAERS Safety Report 17211331 (Version 9)
Quarter: 2021Q4

REPORT INFORMATION
  Report Type: Report from Study
  Country: US (occurrence: US)
  Receive Date: 20191228
  Receipt Date: 20211118
  Transmission Date: 20220303
  Serious: Yes (Hospitalization)
  Sender: FDA-Public Use
  Company Number: US-PCYC-2019PHC13833

PATIENT
  Age: 75 Year
  Sex: Male
  Weight: 93.070 kg

DRUGS (25)
  1. IMBRUVICA [Suspect]
     Active Substance: IBRUTINIB
     Indication: Chronic lymphocytic leukaemia
     Dosage: 420 MG, QD
     Route: 048
     Dates: start: 20170809, end: 20171224
  2. IMBRUVICA [Suspect]
     Active Substance: IBRUTINIB
     Route: 048
     Dates: start: 20200227, end: 20210331
  3. NITROGLYCERIN [Concomitant]
     Active Substance: NITROGLYCERIN
     Indication: Chest pain
     Dosage: 9.5 PRN
     Route: 048
     Dates: start: 20171224, end: 20171224
  4. TYLENOL                            /00020001/ [Concomitant]
     Indication: Pain
     Dosage: 650 Q 4 HOURS PRN
  5. ATORVASTATIN [Concomitant]
     Active Substance: ATORVASTATIN
     Indication: Product used for unknown indication
     Dosage: 40 MG, UNK
  6. CALCIUM CARBONATE [Concomitant]
     Active Substance: CALCIUM CARBONATE
     Indication: Product used for unknown indication
     Dosage: 200 MG 1-2 Q 6 PRN
  7. VITAMIN D [Concomitant]
     Active Substance: VITAMIN D NOS
     Indication: Vitamin supplementation
     Dosage: 2000 UNIT, QD
  8. VITAMIN D [Concomitant]
     Active Substance: VITAMIN D NOS
     Route: 048
  9. HYDROCHLOROTHIAZIDE [Concomitant]
     Active Substance: HYDROCHLOROTHIAZIDE
     Indication: Product used for unknown indication
     Dosage: 12.5 MG, QD
  10. LACTOBACILLUS ACIDOPHILUS [Concomitant]
     Active Substance: LACTOBACILLUS ACIDOPHILUS
     Indication: Product used for unknown indication
  11. LISINOPRIL [Concomitant]
     Active Substance: LISINOPRIL
     Indication: Hypertension
     Dosage: 10 MG, QD
  12. LISINOPRIL [Concomitant]
     Active Substance: LISINOPRIL
     Route: 048
     Dates: start: 20130923
  13. METOPROLOL [Concomitant]
     Active Substance: METOPROLOL
     Indication: Product used for unknown indication
     Dosage: 25 MG, BID
  14. OMEPRAZOLE [Concomitant]
     Active Substance: OMEPRAZOLE
     Indication: Product used for unknown indication
     Dosage: 40 MG, QD
  15. KCL [Concomitant]
     Active Substance: POTASSIUM CHLORIDE
     Indication: Product used for unknown indication
     Dosage: 10 MEQ DAILY
  16. TAMSULOSIN HYDROCHLORIDE [Concomitant]
     Active Substance: TAMSULOSIN HYDROCHLORIDE
     Indication: Product used for unknown indication
     Dosage: 0.4 UNK, UNK
     Route: 048
     Dates: start: 20130929
  17. TAMSULOSIN HYDROCHLORIDE [Concomitant]
     Active Substance: TAMSULOSIN HYDROCHLORIDE
     Indication: Benign prostatic hyperplasia
  18. CIALIS [Concomitant]
     Active Substance: TADALAFIL
     Indication: Erectile dysfunction
     Route: 048
     Dates: start: 20140228
  19. ZINC ACETATE [Concomitant]
     Active Substance: ZINC ACETATE
     Indication: Mineral supplementation
     Route: 048
  20. ZYRTEC [Concomitant]
     Active Substance: CETIRIZINE HYDROCHLORIDE
     Indication: Seasonal allergy
     Route: 048
  21. ACETAMINOPHEN [Concomitant]
     Active Substance: ACETAMINOPHEN
     Indication: Chest pain
     Route: 048
     Dates: start: 20171227, end: 20171227
  22. MORPHINE [Concomitant]
     Active Substance: MORPHINE
     Indication: Chest pain
     Route: 042
     Dates: start: 20171224, end: 20171224
  23. POTASSIUM CHLORIDE [Concomitant]
     Active Substance: POTASSIUM CHLORIDE
     Indication: Hypokalaemia
     Route: 048
     Dates: start: 20180103
  24. ELIQUIS [Concomitant]
     Active Substance: APIXABAN
     Indication: Atrial fibrillation
     Dates: start: 20210621
  25. HYDROCHLOROTHIAZIDE [Concomitant]
     Active Substance: HYDROCHLOROTHIAZIDE
     Indication: Hypertension
     Route: 048
     Dates: start: 20130923

REACTIONS (3)
  - Acute coronary syndrome [Recovered/Resolved]
  - Angina pectoris [Recovered/Resolved with Sequelae]
  - Atrial fibrillation [Recovered/Resolved]

NARRATIVE: CASE EVENT DATE: 20171224
